FAERS Safety Report 11114374 (Version 21)
Quarter: 2017Q2

REPORT INFORMATION
  Report Type: Report from Study
  Country: CA (occurrence: CA)
  Receive Date: 20150514
  Receipt Date: 20170531
  Transmission Date: 20170829
  Serious: Yes (Hospitalization, Other)
  Sender: FDA-Public Use
  Company Number: CA-ROCHE-1439029

PATIENT
  Age: 54 Year
  Sex: Female
  Weight: 124 kg

DRUGS (13)
  1. FOLIC ACID. [Concomitant]
     Active Substance: FOLIC ACID
  2. CIPROLEX [Concomitant]
     Active Substance: CIPROFLOXACIN HYDROCHLORIDE
  3. HYDROXYCHLOROQUINE [Suspect]
     Active Substance: HYDROXYCHLOROQUINE
     Indication: PRODUCT USED FOR UNKNOWN INDICATION
     Route: 065
  4. CELEBREX [Suspect]
     Active Substance: CELECOXIB
     Indication: PRODUCT USED FOR UNKNOWN INDICATION
     Route: 065
  5. ACTEMRA [Suspect]
     Active Substance: TOCILIZUMAB
     Indication: RHEUMATOID ARTHRITIS
     Route: 042
     Dates: start: 20140623, end: 20160810
  6. ATIVAN [Concomitant]
     Active Substance: LORAZEPAM
     Dosage: PRN
     Route: 065
  7. PLAQUENIL [Concomitant]
     Active Substance: HYDROXYCHLOROQUINE SULFATE
  8. ACTEMRA [Suspect]
     Active Substance: TOCILIZUMAB
     Route: 042
     Dates: start: 20150630
  9. SEROQUEL [Concomitant]
     Active Substance: QUETIAPINE FUMARATE
  10. METHOTREXATE. [Concomitant]
     Active Substance: METHOTREXATE
  11. CLONAZEPAM. [Concomitant]
     Active Substance: CLONAZEPAM
  12. ACTEMRA [Suspect]
     Active Substance: TOCILIZUMAB
     Indication: RHEUMATOID ARTHRITIS
     Route: 058
     Dates: start: 20161209
  13. TYLENOL ARTHRITIS PAIN [Concomitant]
     Active Substance: ACETAMINOPHEN

REACTIONS (29)
  - Cellulitis [Unknown]
  - Infusion related reaction [Unknown]
  - Limb injury [Recovered/Resolved]
  - Renal impairment [Unknown]
  - Uterine disorder [Unknown]
  - Uterine polyp [Unknown]
  - Wrong technique in product usage process [Unknown]
  - Neuropathy peripheral [Not Recovered/Not Resolved]
  - Peripheral vascular disorder [Unknown]
  - Neuropathy peripheral [Unknown]
  - Arthralgia [Not Recovered/Not Resolved]
  - Vasculitis [Recovered/Resolved]
  - Ingrowing nail [Not Recovered/Not Resolved]
  - Bronchitis [Not Recovered/Not Resolved]
  - Blood pressure fluctuation [Unknown]
  - Osteomyelitis [Recovered/Resolved]
  - Plasma cell myeloma [Unknown]
  - Eye infection [Unknown]
  - Retinal disorder [Recovered/Resolved]
  - Blood pressure fluctuation [Unknown]
  - Blister infected [Recovered/Resolved]
  - Nail infection [Not Recovered/Not Resolved]
  - Hypotension [Unknown]
  - Cellulitis [Recovered/Resolved]
  - Blood pressure increased [Unknown]
  - Foot fracture [Unknown]
  - Weight increased [Unknown]
  - Blood pressure diastolic increased [Unknown]
  - Postoperative wound infection [Recovered/Resolved]

NARRATIVE: CASE EVENT DATE: 20140721
